FAERS Safety Report 21810628 (Version 1)
Quarter: 2023Q1

REPORT INFORMATION
  Report Type: Spontaneous
  Country: US (occurrence: US)
  Receive Date: 20230103
  Receipt Date: 20230103
  Transmission Date: 20230417
  Serious: Yes (Hospitalization)
  Sender: FDA-Public Use
  Company Number: US-BIOVITRUM-2023US00062

PATIENT
  Sex: Male

DRUGS (2)
  1. SYNAGIS [Suspect]
     Active Substance: PALIVIZUMAB
     Indication: Premature baby
     Dosage: 100MG/ML
     Dates: start: 202207
  2. SYNAGIS [Suspect]
     Active Substance: PALIVIZUMAB
     Dosage: 50MG/0.5ML, 100MG/ML
     Dates: start: 202211

REACTIONS (3)
  - Rhinovirus infection [Unknown]
  - Illness [Unknown]
  - Inappropriate schedule of product administration [Unknown]
